FAERS Safety Report 19381225 (Version 1)
Quarter: 2021Q2

REPORT INFORMATION
  Report Type: Spontaneous
  Country: US (occurrence: US)
  Receive Date: 20210604
  Receipt Date: 20210604
  Transmission Date: 20210717
  Serious: Yes (Hospitalization)
  Sender: FDA-Public Use
  Company Number: None

PATIENT
  Age: 57 Year
  Sex: Female

DRUGS (16)
  1. DULOXETINE. [Concomitant]
     Active Substance: DULOXETINE
  2. POT CHLORIDE [Concomitant]
     Active Substance: POTASSIUM CHLORIDE
  3. TASIGNA [Suspect]
     Active Substance: NILOTINIB
     Indication: CHRONIC MYELOID LEUKAEMIA
     Route: 048
     Dates: start: 20190820
  4. JANUVIA [Concomitant]
     Active Substance: SITAGLIPTIN PHOSPHATE
  5. OXYCODONE [Concomitant]
     Active Substance: OXYCODONE
  6. LEVOTHYROXIN [Concomitant]
     Active Substance: LEVOTHYROXINE
  7. SPIRONOLATE [Concomitant]
  8. CHLORHEX [Concomitant]
     Active Substance: CHLORHEXIDINE GLUCONATE
  9. FENOFIBRATE. [Concomitant]
     Active Substance: FENOFIBRATE
  10. FEUROSEMIDE [Concomitant]
  11. SPIRONO/HCTZ [Concomitant]
  12. TRAZODONE [Concomitant]
     Active Substance: TRAZODONE HYDROCHLORIDE
  13. NUCYNTA [Concomitant]
     Active Substance: TAPENTADOL HYDROCHLORIDE
  14. CIMETIDINE [Concomitant]
     Active Substance: CIMETIDINE
  15. POTASSIUM [Concomitant]
     Active Substance: POTASSIUM
  16. ATORVASTATIN [Concomitant]
     Active Substance: ATORVASTATIN

REACTIONS (2)
  - Fatigue [None]
  - Jaw fracture [None]

NARRATIVE: CASE EVENT DATE: 20210325
